FAERS Safety Report 9955109 (Version 5)
Quarter: 2014Q2

REPORT INFORMATION
  Report Type: Report from Study
  Country: US (occurrence: US)
  Receive Date: 20140304
  Receipt Date: 20140523
  Transmission Date: 20141212
  Serious: Yes (Hospitalization)
  Sender: FDA-Public Use
  Company Number: US-SA-2014SA023177

PATIENT
  Age: 45 Year
  Sex: Female
  Weight: 150 kg

DRUGS (7)
  1. AUBAGIO [Suspect]
     Indication: MULTIPLE SCLEROSIS
     Route: 048
     Dates: start: 20140218, end: 20140219
  2. TYLENOL [Concomitant]
  3. VITAMIN D [Concomitant]
     Indication: MULTIPLE SCLEROSIS
  4. VITAMIN D [Concomitant]
     Indication: VITAMIN D DECREASED
  5. CELEXA [Concomitant]
     Indication: DEPRESSION
     Dosage: 20 TO 40 MG
  6. CELEXA [Concomitant]
     Indication: ANXIETY
     Dosage: 20 TO 40 MG
  7. REBIF [Concomitant]
     Indication: MULTIPLE SCLEROSIS
     Route: 058
     Dates: start: 20131203, end: 20140116

REACTIONS (19)
  - Muscle spasms [Recovering/Resolving]
  - Musculoskeletal pain [Recovering/Resolving]
  - Diarrhoea [Recovering/Resolving]
  - Stomatitis [Recovering/Resolving]
  - Oral mucosal blistering [Recovering/Resolving]
  - Oral pain [Recovering/Resolving]
  - Gingival erythema [Recovering/Resolving]
  - Gingival swelling [Recovering/Resolving]
  - Skin reaction [Recovering/Resolving]
  - Rash [Recovering/Resolving]
  - Swelling face [Recovering/Resolving]
  - Erythema [Recovering/Resolving]
  - Rash [Recovering/Resolving]
  - Back pain [Recovering/Resolving]
  - Dyspnoea [Not Recovered/Not Resolved]
  - Chest discomfort [Not Recovered/Not Resolved]
  - Chest pain [Not Recovered/Not Resolved]
  - Muscle spasms [Not Recovered/Not Resolved]
  - Drug administration error [Unknown]
